FAERS Safety Report 11007951 (Version 9)
Quarter: 2016Q1

REPORT INFORMATION
  Report Type: Report from Study
  Country: BR (occurrence: BR)
  Receive Date: 20150410
  Receipt Date: 20160129
  Transmission Date: 20160525
  Serious: Yes (Life-Threatening, Other)
  Sender: FDA-Public Use
  Company Number: PHHY2014BR089671

PATIENT
  Age: 66 Year
  Sex: Female
  Weight: 49 kg

DRUGS (9)
  1. GALVUS MET [Suspect]
     Active Substance: METFORMIN HYDROCHLORIDE\VILDAGLIPTIN
     Dosage: 1 DF, TID
     Route: 048
  2. LOTAR [Concomitant]
     Active Substance: AMLODIPINE\LOSARTAN
     Indication: HYPERTENSION
     Dosage: 1 DF, QD (5/100MG)
     Route: 048
  3. GALVUS [Suspect]
     Active Substance: VILDAGLIPTIN
     Dosage: 2 DF, QD
     Route: 048
  4. AAS [Concomitant]
     Active Substance: ASPIRIN
     Indication: CARDIAC DISORDER
     Route: 065
  5. GALVUS [Suspect]
     Active Substance: VILDAGLIPTIN
     Indication: DIABETES MELLITUS
     Dosage: 50 MG, QD (AT LUNCH)
     Route: 048
  6. GALVUS MET [Suspect]
     Active Substance: METFORMIN HYDROCHLORIDE\VILDAGLIPTIN
     Indication: DIABETES MELLITUS
     Dosage: 3 DF (METFORMIN 850 MG, VILDAGLIPTIN 50 MG), QD
     Route: 065
  7. ALPRAZOLAM. [Concomitant]
     Active Substance: ALPRAZOLAM
     Indication: ANXIETY
     Dosage: 1 MG, QD
     Route: 048
  8. METFORMIN [Suspect]
     Active Substance: METFORMIN HYDROCHLORIDE
     Indication: DIABETES MELLITUS
     Dosage: 850 MG, TID
     Route: 048
  9. GALVUS MET [Suspect]
     Active Substance: METFORMIN HYDROCHLORIDE\VILDAGLIPTIN
     Dosage: 2 DF, QD
     Route: 048

REACTIONS (20)
  - Pneumonia [Recovered/Resolved]
  - Hypersensitivity [Unknown]
  - Anxiety [Unknown]
  - Malaise [Unknown]
  - Hypoglycaemia [Unknown]
  - Feeling hot [Unknown]
  - Renal disorder [Recovering/Resolving]
  - Heart rate abnormal [Recovering/Resolving]
  - Depression [Not Recovered/Not Resolved]
  - Blood glucose increased [Unknown]
  - Erythema [Recovering/Resolving]
  - Ventricular arrhythmia [Recovering/Resolving]
  - Tremor [Recovering/Resolving]
  - Blood glucose decreased [Unknown]
  - Nasopharyngitis [Recovered/Resolved]
  - Weight decreased [Not Recovered/Not Resolved]
  - Drug ineffective [Unknown]
  - Diabetes mellitus inadequate control [Unknown]
  - Feeling of despair [Unknown]
  - Weight decreased [Recovered/Resolved]

NARRATIVE: CASE EVENT DATE: 201508
